FAERS Safety Report 12276043 (Version 2)
Quarter: 2016Q2

REPORT INFORMATION
  Report Type: Spontaneous
  Country: US (occurrence: US)
  Receive Date: 20160418
  Receipt Date: 20160509
  Transmission Date: 20160815
  Serious: Yes (Hospitalization, Other)
  Sender: FDA-Public Use
  Company Number: US-GILEAD-2016-0207922

PATIENT
  Age: 65 Year
  Sex: Male
  Weight: 142.86 kg

DRUGS (25)
  1. AMMONIUM LACTATE. [Concomitant]
     Active Substance: AMMONIUM LACTATE
  2. ASPIRIN                            /00002701/ [Concomitant]
     Active Substance: ASPIRIN
  3. EPINEPHRINE. [Concomitant]
     Active Substance: EPINEPHRINE
  4. INSULIN ASPART [Concomitant]
     Active Substance: INSULIN ASPART
  5. MELATONIN [Concomitant]
     Active Substance: MELATONIN
  6. HARVONI [Suspect]
     Active Substance: LEDIPASVIR\SOFOSBUVIR
     Indication: HEPATITIS C
     Dosage: 400 MG, QD
     Route: 048
     Dates: start: 20160402, end: 20160406
  7. LISINOPRIL. [Suspect]
     Active Substance: LISINOPRIL
     Indication: BLOOD PRESSURE MEASUREMENT
     Dosage: 2 DF, QD
     Route: 048
  8. INSULIN [Concomitant]
     Active Substance: INSULIN NOS
  9. TRAZODONE HYDROCHLORIDE. [Concomitant]
     Active Substance: TRAZODONE HYDROCHLORIDE
  10. UREA. [Concomitant]
     Active Substance: UREA
  11. METFORMIN HCL [Concomitant]
     Active Substance: METFORMIN HYDROCHLORIDE
  12. CHOLECALCIFEROL [Concomitant]
     Active Substance: CHOLECALCIFEROL
  13. CLINDAMYCIN [Concomitant]
     Active Substance: CLINDAMYCIN\CLINDAMYCIN PHOSPHATE
  14. HYDROCHLOROTHIAZIDE W/LOSARTAN [Concomitant]
     Active Substance: HYDROCHLOROTHIAZIDE\LOSARTAN
  15. OMEPRAZOLE. [Concomitant]
     Active Substance: OMEPRAZOLE
  16. CETIRIZINE HCL [Concomitant]
     Active Substance: CETIRIZINE HYDROCHLORIDE
  17. GUAIFENESIN. [Concomitant]
     Active Substance: GUAIFENESIN
  18. PREDNISONE. [Concomitant]
     Active Substance: PREDNISONE
  19. FISH OIL [Concomitant]
     Active Substance: FISH OIL
  20. MULTIVITAMIN                       /00097801/ [Concomitant]
     Active Substance: VITAMINS
  21. SILDENAFIL CITRATE. [Concomitant]
     Active Substance: SILDENAFIL CITRATE
  22. TRETINOIN. [Concomitant]
     Active Substance: TRETINOIN
  23. AMLODIPINE BESYLATE. [Concomitant]
     Active Substance: AMLODIPINE BESYLATE
  24. FLUTICASONE PROPIONATE. [Concomitant]
     Active Substance: FLUTICASONE PROPIONATE
  25. MONTELUKAST SODIUM. [Concomitant]
     Active Substance: MONTELUKAST SODIUM

REACTIONS (2)
  - Tonsillar hypertrophy [Recovered/Resolved]
  - Angioedema [Recovered/Resolved]

NARRATIVE: CASE EVENT DATE: 20160406
